FAERS Safety Report 6021166-6 (Version None)
Quarter: 2008Q4

REPORT INFORMATION
  Report Type: 
  Country: None (occurrence: None)
  Receive Date: 20081229
  Receipt Date: 20081217
  Transmission Date: 20090506
  Serious: Yes (Other)
  Sender: FDA-Public Use
  Company Number: CA-PFIZER INC-2008156660

PATIENT

DRUGS (5)
  1. CELEBREX [Suspect]
     Dosage: UNK
  2. LYRICA [Concomitant]
     Dosage: UNK
  3. PREVACID [Concomitant]
     Dosage: UNK
  4. DOCUSATE SODIUM [Concomitant]
     Dosage: UNK
  5. CARDIOVASCULAR SYSTEM DRUGS [Concomitant]
     Dosage: UNK

REACTIONS (1)
  - ULCER [None]
